FAERS Safety Report 9778959 (Version 1)
Quarter: 2013Q4

REPORT INFORMATION
  Report Type: Spontaneous
  Country: US (occurrence: US)
  Receive Date: 20131223
  Receipt Date: 20131223
  Transmission Date: 20140711
  Serious: Yes (Other)
  Sender: FDA-Public Use
  Company Number: US-JNJFOC-20131213232

PATIENT
  Sex: 0

DRUGS (2)
  1. EVICEL [Suspect]
     Indication: PTERYGIUM OPERATION
     Route: 061
  2. ALL OTHER THERAPEUTIC PRODUCTS [Concomitant]
     Indication: PTERYGIUM OPERATION
     Route: 061

REACTIONS (2)
  - Wound dehiscence [Unknown]
  - Off label use [Unknown]
